FAERS Safety Report 9720399 (Version 1)
Quarter: 2013Q4

REPORT INFORMATION
  Report Type: Spontaneous
  Country: IT (occurrence: IT)
  Receive Date: 20131129
  Receipt Date: 20131129
  Transmission Date: 20140711
  Serious: Yes (Other)
  Sender: FDA-Public Use
  Company Number: US-ASTRAZENECA-2013SE87274

PATIENT
  Age: 3 Month
  Sex: Male

DRUGS (1)
  1. BLOPRESS [Suspect]
     Indication: PRODUCT USED FOR UNKNOWN INDICATION
     Route: 063

REACTIONS (5)
  - Haematocrit decreased [Recovered/Resolved]
  - Bone marrow failure [Recovered/Resolved]
  - Haemolytic anaemia [Recovered/Resolved]
  - Haemoglobin decreased [Recovered/Resolved]
  - Exposure during breast feeding [Recovered/Resolved]
